FAERS Safety Report 21402184 (Version 1)
Quarter: 2022Q4

REPORT INFORMATION
  Report Type: Spontaneous
  Country: US (occurrence: US)
  Receive Date: 20221003
  Receipt Date: 20221003
  Transmission Date: 20230113
  Serious: Yes (Death, Other)
  Sender: FDA-Public Use
  Company Number: US-AMGEN-USASL2022167013

PATIENT
  Sex: Female

DRUGS (1)
  1. ENBREL [Suspect]
     Active Substance: ETANERCEPT
     Indication: Rheumatoid arthritis
     Dosage: UNK
     Route: 065

REACTIONS (6)
  - Death [Fatal]
  - Rheumatoid arthritis [Unknown]
  - Hip fracture [Unknown]
  - Bone disorder [Unknown]
  - Muscle spasms [Unknown]
  - Therapy interrupted [Unknown]
